FAERS Safety Report 7183989-X (Version None)
Quarter: 2010Q4

REPORT INFORMATION
  Report Type: 
  Country: None (occurrence: None)
  Receive Date: 20101222
  Receipt Date: 20101210
  Transmission Date: 20110411
  Serious: Yes (Hospitalization)
  Sender: FDA-Public Use
  Company Number: NL-PFIZER INC-2010171151

PATIENT
  Age: 62 Year
  Sex: Male

DRUGS (1)
  1. SUTENT [Suspect]
     Indication: RENAL CELL CARCINOMA
     Dosage: 50 MG, 1X/DAY, 4 WEEKS ON-2 WEEKS OFF

REACTIONS (5)
  - DEHYDRATION [None]
  - LEUKOPENIA [None]
  - PSYCHOTIC DISORDER [None]
  - PYREXIA [None]
  - THROMBOCYTOPENIA [None]
